FAERS Safety Report 9918718 (Version 2)
Quarter: 2014Q1

REPORT INFORMATION
  Report Type: Spontaneous
  Country: GB (occurrence: GB)
  Receive Date: 20140224
  Receipt Date: 20140224
  Transmission Date: 20141002
  Serious: Yes (Other)
  Sender: FDA-Public Use
  Company Number: GB-ROCHE-1348010

PATIENT
  Age: 34 Year
  Sex: Male

DRUGS (10)
  1. RIBAVIRIN [Suspect]
     Indication: HEPATITIS C
     Route: 065
     Dates: start: 201304
  2. TELAPREVIR [Suspect]
     Indication: HEPATITIS C
     Route: 048
     Dates: start: 201304
  3. VIRAFERON [Suspect]
     Indication: HEPATITIS C
     Dosage: DOSE: 150 MCG 0.5 ML.
     Route: 065
  4. VIRAFERON [Suspect]
     Dosage: DOSE: 150 MCG 0.3 ML.
     Route: 065
  5. ADCAL-D3 [Concomitant]
  6. FOLIC ACID [Concomitant]
  7. FUROSEMIDE [Concomitant]
     Route: 065
  8. METHADONE [Concomitant]
     Route: 065
  9. MIRTAZAPINE [Concomitant]
     Route: 065
  10. TERBUTALINE SULPHATE [Concomitant]
     Route: 065

REACTIONS (8)
  - Leukopenia [Recovering/Resolving]
  - Neutropenia [Recovering/Resolving]
  - Anaemia [Recovering/Resolving]
  - Influenza like illness [Unknown]
  - Lethargy [Unknown]
  - Mood altered [Unknown]
  - Rash [Recovering/Resolving]
  - Thrombocytopenia [Recovering/Resolving]
